FAERS Safety Report 8965320 (Version 2)
Quarter: 2013Q1

REPORT INFORMATION
  Report Type: Spontaneous
  Country: US (occurrence: US)
  Receive Date: 20121213
  Receipt Date: 20130123
  Transmission Date: 20140127
  Serious: No
  Sender: FDA-Public Use
  Company Number: US-PFIZER INC-2012211506

PATIENT
  Age: 20 Year
  Sex: Female
  Weight: 77.55 kg

DRUGS (3)
  1. SOMAVERT [Suspect]
     Indication: ACROMEGALY
     Dosage: 10 MG, DAILY
     Route: 058
     Dates: start: 201207
  2. SOMAVERT [Suspect]
     Dosage: 10 MG, DAILY
     Route: 058
     Dates: start: 20120803
  3. VIT D3 [Concomitant]
     Dosage: 10000 IU, WEEKLY
     Route: 048

REACTIONS (4)
  - Dysmenorrhoea [Unknown]
  - Amenorrhoea [Unknown]
  - Acne [Unknown]
  - Menstruation irregular [Unknown]
